FAERS Safety Report 23300150 (Version 2)
Quarter: 2023Q4

REPORT INFORMATION
  Report Type: Spontaneous
  Country: US (occurrence: US)
  Receive Date: 20231215
  Receipt Date: 20231220
  Transmission Date: 20240109
  Serious: Yes (Death, Other)
  Sender: FDA-Public Use
  Company Number: US-BRISTOL-MYERS SQUIBB COMPANY-2023-181438

PATIENT
  Age: 76 Year
  Sex: Female

DRUGS (7)
  1. INREBIC [Suspect]
     Active Substance: FEDRATINIB HYDROCHLORIDE
     Indication: Myelofibrosis
     Dosage: TAKE 4 CAPSULES BY MOUTH AT THE SAME TIME EACH DAY. TAKE WITH A HIGH FAT MEAL TO REDUCE NAUSEA
     Route: 048
     Dates: start: 20231114
  2. METAMUCIL [Concomitant]
     Active Substance: PLANTAGO SEED
     Dosage: FR POW 43%
  3. MIRALAX [Concomitant]
     Active Substance: POLYETHYLENE GLYCOL 3350
     Dosage: POW 17GM/SCOOP
  4. NITROFURANTOIN [Concomitant]
     Active Substance: NITROFURANTOIN
  5. SENOKOT [Concomitant]
     Active Substance: SENNOSIDES
  6. FAMOTIDINE [Concomitant]
     Active Substance: FAMOTIDINE
  7. ONDANSETRON [Concomitant]
     Active Substance: ONDANSETRON

REACTIONS (1)
  - Death [Fatal]

NARRATIVE: CASE EVENT DATE: 20231201
